FAERS Safety Report 23184008 (Version 1)
Quarter: 2023Q4

REPORT INFORMATION
  Report Type: Spontaneous
  Country: JP (occurrence: JP)
  Receive Date: 20231115
  Receipt Date: 20231115
  Transmission Date: 20240110
  Serious: Yes (Other)
  Sender: FDA-Public Use
  Company Number: JP-BAYER-2023A153501

PATIENT
  Age: 83 Year
  Sex: Male

DRUGS (3)
  1. XARELTO [Suspect]
     Active Substance: RIVAROXABAN
     Indication: Atrial fibrillation
     Dosage: 15 MG, QD
     Route: 048
     Dates: end: 20231012
  2. XARELTO [Suspect]
     Active Substance: RIVAROXABAN
     Indication: Thrombosis
     Dosage: 15 MG, QD
     Route: 048
     Dates: start: 202310
  3. XARELTO [Suspect]
     Active Substance: RIVAROXABAN
     Dosage: 15 MG, BID
     Route: 048
     Dates: start: 202310, end: 20231030

REACTIONS (2)
  - Deep vein thrombosis postoperative [Recovered/Resolved]
  - Small intestine carcinoma [Unknown]

NARRATIVE: CASE EVENT DATE: 20231001
